FAERS Safety Report 12135401 (Version 4)
Quarter: 2019Q1

REPORT INFORMATION
  Report Type: Spontaneous
  Country: CA (occurrence: CA)
  Receive Date: 20160302
  Receipt Date: 20190118
  Transmission Date: 20190417
  Serious: Yes (Other)
  Sender: FDA-Public Use
  Company Number: CA-ROCHE-1632307

PATIENT
  Age: 56 Year
  Sex: Female

DRUGS (5)
  1. ENBREL [Suspect]
     Active Substance: ETANERCEPT
     Indication: RHEUMATOID ARTHRITIS
     Route: 058
  2. RITUXAN [Suspect]
     Active Substance: RITUXIMAB
     Indication: PRODUCT USED FOR UNKNOWN INDICATION
     Route: 042
  3. PREDNISONE. [Concomitant]
     Active Substance: PREDNISONE
  4. METHOTREXATE. [Concomitant]
     Active Substance: METHOTREXATE
  5. XELJANZ [Suspect]
     Active Substance: TOFACITINIB CITRATE
     Indication: PRODUCT USED FOR UNKNOWN INDICATION
     Route: 065
     Dates: start: 20140722

REACTIONS (16)
  - Joint swelling [Unknown]
  - Rash [Unknown]
  - Drug effect decreased [Unknown]
  - Condition aggravated [Unknown]
  - Herpes zoster [Unknown]
  - Arthralgia [Unknown]
  - Rheumatoid arthritis [Unknown]
  - Skin papilloma [Unknown]
  - Drug hypersensitivity [Unknown]
  - Pain [Unknown]
  - Stress [Unknown]
  - Peripheral swelling [Unknown]
  - Nodule [Unknown]
  - Hypersensitivity [Unknown]
  - Fatigue [Unknown]
  - Acne [Unknown]
